FAERS Safety Report 6289138-4 (Version None)
Quarter: 2009Q3

REPORT INFORMATION
  Report Type: 
  Country: None (occurrence: None)
  Receive Date: 20090729
  Receipt Date: 20070627
  Transmission Date: 20100115
  Serious: Yes (Other)
  Sender: FDA-Public Use
  Company Number: US-ASTRAZENECA-2006UW12089

PATIENT
  Age: 16857 Day
  Sex: Female
  Weight: 101.6 kg

DRUGS (20)
  1. SEROQUEL [Suspect]
     Indication: SLEEP DISORDER
     Dosage: 100 TO 300 MG PER DAY
     Route: 048
     Dates: start: 20020501, end: 20031001
  2. SEROQUEL [Suspect]
     Indication: ANXIETY
     Dosage: 100 TO 300 MG PER DAY
     Route: 048
     Dates: start: 20020501, end: 20031001
  3. SEROQUEL [Suspect]
     Indication: DEPRESSION
     Dosage: 100 TO 300 MG PER DAY
     Route: 048
     Dates: start: 20020501, end: 20031001
  4. SEROQUEL [Suspect]
     Route: 048
     Dates: start: 20031201, end: 20041011
  5. SEROQUEL [Suspect]
     Route: 048
     Dates: start: 20031201, end: 20041011
  6. SEROQUEL [Suspect]
     Route: 048
     Dates: start: 20031201, end: 20041011
  7. RISPERDAL [Concomitant]
     Dates: start: 20020101
  8. DEPAKOTE [Concomitant]
     Dosage: 500-1000 MG
     Dates: start: 20040329
  9. TOPAMAX [Concomitant]
     Dosage: 100 MG, ONE AND HALF TABLET IN MORNING AND TWO AT BED TIME
     Dates: start: 20031201
  10. LEXAPRO [Concomitant]
     Dates: start: 20031201
  11. XANAX [Concomitant]
     Dates: start: 20031201
  12. AMITRIPTYLINE HCL [Concomitant]
     Dosage: 50 MG, DISPENSED
     Dates: start: 20031230
  13. ESTRADIOL [Concomitant]
     Dosage: 2 MG, DISPENSED
     Dates: start: 20031010
  14. CYCLOBENZAPRINE HCL [Concomitant]
     Dosage: 10 MG, DISPESED
     Dates: start: 20040113
  15. FUROSEMIDE [Concomitant]
     Dosage: 40 MG, DISPENSED
     Dates: start: 20031010
  16. LESCOL XL [Concomitant]
     Dosage: 80 MG, DISPENSED
     Dates: start: 20031209
  17. NEXIUM [Concomitant]
     Dosage: 40 MG, DISPENSED
     Dates: start: 20030915
  18. LEVOXYL [Concomitant]
     Dosage: 50 MCG, DISPENSED
     Dates: start: 20031010
  19. KLOR-CON [Concomitant]
     Dosage: M20
     Dates: start: 20040309
  20. METOPROLOL TARTRATE [Concomitant]
     Dosage: 50 MG, DISPENSED
     Dates: start: 20040309

REACTIONS (3)
  - DIABETIC COMA [None]
  - DIABETIC NEUROPATHY [None]
  - TYPE 2 DIABETES MELLITUS [None]
